FAERS Safety Report 13948724 (Version 1)
Quarter: 2017Q3

REPORT INFORMATION
  Report Type: Spontaneous
  Country: US (occurrence: US)
  Receive Date: 20170908
  Receipt Date: 20170908
  Transmission Date: 20171128
  Serious: Yes (Hospitalization)
  Sender: FDA-Public Use
  Company Number: US-PURDUE-GBR-2017-0048646

PATIENT
  Age: 74 Year
  Sex: Female

DRUGS (2)
  1. BUPIVACAINE. [Suspect]
     Active Substance: BUPIVACAINE
     Indication: PAIN
     Dosage: 100 MG, SINGLE
     Route: 037
  2. NON-PMN MORPHINE SULFATE [Suspect]
     Active Substance: MORPHINE SULFATE
     Indication: PAIN
     Dosage: 350 MG, SINGLE
     Route: 037

REACTIONS (4)
  - Toxicity to various agents [Recovered/Resolved]
  - Device infusion issue [Recovered/Resolved]
  - Neurogenic shock [Recovered/Resolved]
  - Status epilepticus [Recovered/Resolved]
